FAERS Safety Report 17436578 (Version 4)
Quarter: 2020Q2

REPORT INFORMATION
  Report Type: Spontaneous
  Country: GR (occurrence: GR)
  Receive Date: 20200219
  Receipt Date: 20200629
  Transmission Date: 20200713
  Serious: Yes (Life-Threatening)
  Sender: FDA-Public Use
  Company Number: NVSC2020GR041393

PATIENT
  Sex: Female
  Weight: 1.67 kg

DRUGS (10)
  1. FILGRASTIM [Suspect]
     Active Substance: FILGRASTIM
     Indication: ACUTE LYMPHOCYTIC LEUKAEMIA
  2. VINCRISTINE [Suspect]
     Active Substance: VINCRISTINE
     Indication: ACUTE LYMPHOCYTIC LEUKAEMIA
  3. DEXAMETHASONE. [Suspect]
     Active Substance: DEXAMETHASONE
     Dosage: 70 MG, QW (MATERNAL DOSE)
     Route: 064
  4. DOXORUBICIN [Suspect]
     Active Substance: DOXORUBICIN
     Indication: FOETAL EXPOSURE DURING PREGNANCY
     Dosage: 50 MG((4 DOSES)
     Route: 064
  5. ALLOPURINOL. [Concomitant]
     Active Substance: ALLOPURINOL
     Indication: FOETAL EXPOSURE DURING PREGNANCY
     Dosage: 300 MG (MATERNAL DOSE)
     Route: 064
  6. FILGRASTIM [Suspect]
     Active Substance: FILGRASTIM
     Indication: FOETAL EXPOSURE DURING PREGNANCY
     Dosage: 4 DF EVERY 7 DAYS (MATERNAL DOSE)
     Route: 064
  7. VINCRISTINE [Suspect]
     Active Substance: VINCRISTINE
     Indication: FOETAL EXPOSURE DURING PREGNANCY
     Dosage: 2 MG, QW(MATERNAL DOSE)
     Route: 064
  8. ALLOPURINOL. [Concomitant]
     Active Substance: ALLOPURINOL
     Indication: ACUTE LYMPHOCYTIC LEUKAEMIA
  9. DEXAMETHASONE. [Suspect]
     Active Substance: DEXAMETHASONE
     Indication: FOETAL EXPOSURE DURING PREGNANCY
     Dosage: 4 MG, QD (MATERNAL DOSE)
     Route: 064
  10. DEXAMETHASONE. [Suspect]
     Active Substance: DEXAMETHASONE
     Indication: ACUTE LYMPHOCYTIC LEUKAEMIA
     Dosage: 20 MG, QW (MATERNAL DOSE)
     Route: 064

REACTIONS (9)
  - Cardiac failure [Unknown]
  - Premature baby [Unknown]
  - Foetal exposure during pregnancy [Unknown]
  - Aneurysm [Unknown]
  - Cardiotoxicity [Unknown]
  - Pericardial effusion [Unknown]
  - Right ventricular dilatation [Unknown]
  - Low birth weight baby [Unknown]
  - Patent ductus arteriosus [Unknown]
